FAERS Safety Report 9204030 (Version 1)
Quarter: 2013Q2

REPORT INFORMATION
  Report Type: Spontaneous
  Country: BR (occurrence: BR)
  Receive Date: 20130402
  Receipt Date: 20130402
  Transmission Date: 20140414
  Serious: Yes (Other)
  Sender: FDA-Public Use
  Company Number: BR-ELI_LILLY_AND_COMPANY-BR201303008219

PATIENT
  Age: 50 Year
  Sex: Female
  Weight: 82 kg

DRUGS (4)
  1. CYMBALTA [Suspect]
     Indication: PAIN IN EXTREMITY
     Dosage: 30 MG, BID
     Route: 048
     Dates: start: 20130321
  2. CODEINE W/PARACETAMOL [Concomitant]
     Indication: PAIN IN EXTREMITY
     Dosage: UNK, TID
     Route: 065
  3. VERAPAMIL [Concomitant]
     Indication: BLOOD PRESSURE
     Dosage: UNK, BID
     Route: 065
  4. DIAZEPAM [Concomitant]
     Indication: DEPRESSION
     Dosage: UNK, UNKNOWN
     Route: 065

REACTIONS (9)
  - Suicidal ideation [Not Recovered/Not Resolved]
  - Cerebrovascular accident [Not Recovered/Not Resolved]
  - Salivary hypersecretion [Not Recovered/Not Resolved]
  - Off label use [Unknown]
  - Tongue disorder [Not Recovered/Not Resolved]
  - Oral disorder [Not Recovered/Not Resolved]
  - Somnolence [Not Recovered/Not Resolved]
  - Asthenia [Not Recovered/Not Resolved]
  - Dizziness [Not Recovered/Not Resolved]
